FAERS Safety Report 8812385 (Version 2)
Quarter: 2012Q4

REPORT INFORMATION
  Report Type: 
  Country: SE (occurrence: SE)
  Receive Date: 20120927
  Receipt Date: 20121005
  Transmission Date: 20130627
  Serious: Yes (Hospitalization)
  Sender: FDA-Public Use
  Company Number: SE-JNJFOC-20120909189

PATIENT
  Sex: Female

DRUGS (2)
  1. TOPIMAX [Suspect]
     Indication: EPILEPSY
     Route: 065
  2. LAMOTRIGINE [Suspect]
     Indication: EPILEPSY
     Route: 065

REACTIONS (4)
  - Convulsion [Unknown]
  - Exposure during pregnancy [Unknown]
  - Akathisia [Unknown]
  - Cognitive disorder [Unknown]
